FAERS Safety Report 4694907-8 (Version None)
Quarter: 2005Q2

REPORT INFORMATION
  Report Type: 
  Country: None (occurrence: None)
  Receive Date: 20050617
  Receipt Date: 20050610
  Transmission Date: 20051028
  Serious: Yes (Life-Threatening, Hospitalization)
  Sender: FDA-Public Use
  Company Number: 163-20785-04100268

PATIENT
  Age: 69 Year
  Sex: Male

DRUGS (2)
  1. THALOMID [Suspect]
     Indication: MYELOFIBROSIS
     Dosage: 100 MG, DAILY, ORAL
     Route: 048
     Dates: start: 20040510, end: 20040801
  2. PREDNISONE (PREDNISONE) [Concomitant]

REACTIONS (1)
  - ENCEPHALITIS HERPES [None]
